FAERS Safety Report 8548672-4 (Version None)
Quarter: 2012Q3

REPORT INFORMATION
  Report Type: 
  Country: None (occurrence: None)
  Receive Date: 20120717
  Receipt Date: 20120704
  Transmission Date: 20120928
  Serious: Yes (Death)
  Sender: FDA-Public Use
  Company Number: MPS1-1000714

PATIENT
  Age: 4 Year
  Sex: Female

DRUGS (2)
  1. ALDURAZYME [Suspect]
     Indication: MUCOPOLYSACCHARIDOSIS I
     Dosage: 2 VIALS, QW, INTRAVENOUS; 3 VIALS, Q, INTRAVENOUS
     Dates: start: 20120101, end: 20120615
  2. ALDURAZYME [Suspect]
     Indication: MUCOPOLYSACCHARIDOSIS I
     Dosage: 2 VIALS, QW, INTRAVENOUS; 3 VIALS, Q, INTRAVENOUS
     Dates: start: 20100121, end: 20120615

REACTIONS (6)
  - RESPIRATORY DISTRESS [None]
  - UPPER AIRWAY OBSTRUCTION [None]
  - COMA [None]
  - CARDIO-RESPIRATORY ARREST [None]
  - DRUG DOSE OMISSION [None]
  - DRUG INEFFECTIVE [None]
